FAERS Safety Report 10528710 (Version 1)
Quarter: 2014Q4

REPORT INFORMATION
  Report Type: Spontaneous
  Country: AU (occurrence: AU)
  Receive Date: 20141020
  Receipt Date: 20141020
  Transmission Date: 20150528
  Serious: Yes (Hospitalization)
  Sender: FDA-Public Use
  Company Number: AU-BANPHARM-20143126

PATIENT
  Age: 32 Year

DRUGS (1)
  1. IBUPROFEN UNKNOWN PRODUCT [Suspect]
     Active Substance: IBUPROFEN
     Indication: SINUSITIS
     Route: 048

REACTIONS (1)
  - Intestinal diaphragm disease [Recovered/Resolved]
